FAERS Safety Report 5982128-8 (Version None)
Quarter: 2008Q4

REPORT INFORMATION
  Report Type: 
  Country: None (occurrence: None)
  Receive Date: 20081202
  Receipt Date: 20081120
  Transmission Date: 20090506
  Serious: Yes (Hospitalization)
  Sender: FDA-Public Use
  Company Number: 2008SP023445

PATIENT
  Age: 65 Year
  Sex: Male

DRUGS (2)
  1. TEMODAL [Suspect]
     Indication: DRUG USE FOR UNKNOWN INDICATION
     Dosage: PO
     Route: 048
  2. KEPPRA [Concomitant]

REACTIONS (2)
  - EPILEPSY [None]
  - INAPPROPRIATE ANTIDIURETIC HORMONE SECRETION [None]
